FAERS Safety Report 7465300-X (Version None)
Quarter: 2011Q2

REPORT INFORMATION
  Report Type: 
  Country: None (occurrence: None)
  Receive Date: 20110509
  Receipt Date: 20101008
  Transmission Date: 20111010
  Serious: No
  Sender: FDA-Public Use
  Company Number: US-SANOFI-AVENTIS-2010SA061849

PATIENT
  Age: 61 Year
  Sex: Female

DRUGS (4)
  1. SOLOSTAR [Suspect]
     Indication: DIABETES MELLITUS
     Dates: start: 20090101
  2. LANTUS [Suspect]
     Indication: DIABETES MELLITUS
     Dosage: DOSE:70 UNIT(S)
     Route: 058
  3. AVAPRO [Concomitant]
     Indication: BLOOD PRESSURE
  4. APIDRA [Suspect]
     Indication: DIABETES MELLITUS
     Dosage: ON SLIDING SCALE WITH MEALS.
     Route: 065
     Dates: start: 20090101

REACTIONS (1)
  - FULL BLOOD COUNT ABNORMAL [None]
